FAERS Safety Report 7821729-9 (Version None)
Quarter: 2011Q4

REPORT INFORMATION
  Report Type: 
  Country: None (occurrence: None)
  Receive Date: 20111018
  Receipt Date: 20110324
  Transmission Date: 20120403
  Serious: No
  Sender: FDA-Public Use
  Company Number: US-ASTRAZENECA-2011SE16929

PATIENT
  Age: 69 Year
  Sex: Female

DRUGS (1)
  1. SYMBICORT [Suspect]
     Indication: BRONCHITIS CHRONIC
     Dosage: 160/4.5 UG TWO PUFFS AT NIGHT
     Route: 055

REACTIONS (4)
  - RESPIRATORY TRACT IRRITATION [None]
  - THROAT IRRITATION [None]
  - NASAL DISCOMFORT [None]
  - NASAL CONGESTION [None]
